FAERS Safety Report 17251370 (Version 1)
Quarter: 2020Q1

REPORT INFORMATION
  Report Type: Spontaneous
  Country: US (occurrence: US)
  Receive Date: 20200108
  Receipt Date: 20200108
  Transmission Date: 20200409
  Serious: Yes (Life-Threatening, Disabling)
  Sender: FDA-Public Use
  Company Number: None

PATIENT
  Age: 46 Year
  Sex: Female
  Weight: 95.4 kg

DRUGS (1)
  1. DEXAMETHASONE. [Suspect]
     Active Substance: DEXAMETHASONE
     Indication: AUTOIMMUNE DISORDER
     Dosage: ?          QUANTITY:9 INJECTION(S);?
     Dates: start: 20160415, end: 20161101

REACTIONS (4)
  - Osteonecrosis [None]
  - Bedridden [None]
  - Pituitary-dependent Cushing^s syndrome [None]
  - Disability [None]

NARRATIVE: CASE EVENT DATE: 20160415
